FAERS Safety Report 12353991 (Version 1)
Quarter: 2016Q2

REPORT INFORMATION
  Report Type: Spontaneous
  Country: US (occurrence: None)
  Receive Date: 20160510
  Receipt Date: 20160510
  Transmission Date: 20160815
  Serious: Yes (Death)
  Sender: FDA-Public Use
  Company Number: None

PATIENT
  Age: 81 Year
  Sex: Male

DRUGS (9)
  1. POMALYST [Suspect]
     Active Substance: POMALIDOMIDE
     Indication: PLASMA CELL MYELOMA
     Route: 048
     Dates: start: 201512
  2. ASA [Concomitant]
     Active Substance: ASPIRIN
  3. ALLOPURINOL. [Concomitant]
     Active Substance: ALLOPURINOL
  4. LEVOTHYROXINE. [Concomitant]
     Active Substance: LEVOTHYROXINE
  5. ATENOLOL. [Concomitant]
     Active Substance: ATENOLOL
  6. INSULIN R [Concomitant]
  7. NIACIN. [Concomitant]
     Active Substance: NIACIN
  8. FUROSEMIDE. [Concomitant]
     Active Substance: FUROSEMIDE
  9. K-TAB [Concomitant]
     Active Substance: POTASSIUM CHLORIDE

REACTIONS (1)
  - Death [None]

NARRATIVE: CASE EVENT DATE: 20160423
